FAERS Safety Report 6228845-6 (Version None)
Quarter: 2009Q2

REPORT INFORMATION
  Report Type: 
  Country: None (occurrence: None)
  Receive Date: 20090615
  Receipt Date: 20070316
  Transmission Date: 20091009
  Serious: Yes (Other)
  Sender: FDA-Public Use
  Company Number: US-ASTRAZENECA-2006UW11527

PATIENT
  Age: 45 Year
  Sex: Female
  Weight: 110 kg

DRUGS (17)
  1. SEROQUEL [Suspect]
     Indication: DEPRESSION
     Dosage: 200 MG TO 300 MG
     Route: 048
     Dates: start: 20040101, end: 20060101
  2. SEROQUEL [Suspect]
     Indication: PSYCHOTIC DISORDER
     Dosage: 200 MG TO 300 MG
     Route: 048
     Dates: start: 20040101, end: 20060101
  3. SEROQUEL [Suspect]
     Dosage: 200-500 MG
     Route: 048
     Dates: start: 20040923
  4. SEROQUEL [Suspect]
     Dosage: 200-500 MG
     Route: 048
     Dates: start: 20040923
  5. ZYPREXA [Suspect]
     Dates: start: 20050101, end: 20060101
  6. GEODON [Concomitant]
     Dates: start: 20050101, end: 20060101
  7. NAVANE [Concomitant]
     Dates: start: 20050101, end: 20060101
  8. TRAZODONE HCL [Concomitant]
     Dates: start: 20050101
  9. LEXAPRO [Concomitant]
     Dates: start: 20050101
  10. KLONOPIN [Concomitant]
     Dates: start: 20040101
  11. PROZAC [Concomitant]
     Route: 048
     Dates: start: 20040923
  12. TEMAZEPAM [Concomitant]
     Dosage: 15 MG, QHS PRN
     Route: 048
     Dates: start: 20040923
  13. GLYBURIDE [Concomitant]
     Route: 048
     Dates: start: 20040923
  14. LISINOPRIL [Concomitant]
     Route: 048
     Dates: start: 20040923
  15. NIFEDIPINE [Concomitant]
     Indication: HYPERTENSION
     Route: 048
     Dates: start: 20040923
  16. NEURONTIN [Concomitant]
     Indication: NEUROPATHY PERIPHERAL
     Route: 048
     Dates: start: 20050411
  17. LIPITOR [Concomitant]
     Indication: HYPERLIPIDAEMIA
     Route: 048
     Dates: start: 20050411

REACTIONS (5)
  - DIABETES MELLITUS [None]
  - DIABETES MELLITUS INADEQUATE CONTROL [None]
  - DIABETIC KETOACIDOSIS [None]
  - DIABETIC NEUROPATHY [None]
  - DIABETIC RETINOPATHY [None]
